FAERS Safety Report 26114821 (Version 2)
Quarter: 2025Q4

REPORT INFORMATION
  Report Type: Spontaneous
  Country: EU (occurrence: EU)
  Receive Date: 20251203
  Receipt Date: 20251210
  Transmission Date: 20260117
  Serious: Yes (Disabling, Other)
  Sender: NOVARTIS
  Company Number: EU-002147023-NVSC2025FR152567

PATIENT
  Age: 59 Year
  Sex: Female

DRUGS (3)
  1. COSENTYX [Suspect]
     Active Substance: SECUKINUMAB
     Indication: Psoriatic arthropathy
     Dosage: 300 MG (1ST INJECTION)
     Route: 065
     Dates: start: 20250610
  2. COSENTYX [Suspect]
     Active Substance: SECUKINUMAB
     Dosage: UNK (2ND INJECTION)
     Route: 065
     Dates: start: 20250617
  3. COSENTYX [Suspect]
     Active Substance: SECUKINUMAB
     Dosage: UNK (3RD INJECTION)
     Route: 065
     Dates: start: 20250624

REACTIONS (7)
  - Psoriatic arthropathy [Recovered/Resolved]
  - Arthralgia [Recovered/Resolved]
  - Palmoplantar pustulosis [Recovered/Resolved]
  - Rash pustular [Recovered/Resolved]
  - Pain [Recovered/Resolved]
  - Pustular psoriasis [Recovered/Resolved]
  - Rash [Recovered/Resolved]

NARRATIVE: CASE EVENT DATE: 20250627
